FAERS Safety Report 9726065 (Version 1)
Quarter: 2013Q4

REPORT INFORMATION
  Report Type: Spontaneous
  Country: TR (occurrence: None)
  Receive Date: 20131129
  Receipt Date: 20131129
  Transmission Date: 20140711
  Serious: Yes (Death, Hospitalization)
  Sender: FDA-Public Use
  Company Number: 2013P1021396

PATIENT
  Age: 17 Year
  Sex: Female

DRUGS (3)
  1. METFORMIN [Suspect]
     Dosage: 75 G; X1
  2. RUPATADINE [Suspect]
     Dosage: 200 MG; X1
  3. AMITRIPTYLINE [Concomitant]

REACTIONS (12)
  - Completed suicide [None]
  - Malaise [None]
  - Lethargy [None]
  - Hypotension [None]
  - Heart rate increased [None]
  - Respiratory rate increased [None]
  - Blood glucose decreased [None]
  - Blood pH decreased [None]
  - PCO2 decreased [None]
  - Haemodialysis [None]
  - Lactic acidosis [None]
  - Ventricular tachycardia [None]
